FAERS Safety Report 9262965 (Version 1)
Quarter: 2013Q2

REPORT INFORMATION
  Report Type: Spontaneous
  Country: US (occurrence: None)
  Receive Date: 20130426
  Receipt Date: 20130426
  Transmission Date: 20140414
  Serious: Yes (Hospitalization)
  Sender: FDA-Public Use
  Company Number: None

PATIENT
  Age: 42 Year
  Sex: Female
  Weight: 75 kg

DRUGS (9)
  1. ASPIRIN [Suspect]
     Indication: CORONARY ARTERY DISEASE
     Dosage: PRIOR TO ADMISSION
     Route: 048
  2. CLOPIDOGREL [Suspect]
     Indication: CORONARY ARTERY DISEASE
     Dosage: PRIOR TO ADMISSION
     Route: 048
  3. BUDESONIDE NASAL SPRAY [Concomitant]
  4. CALCIUM + VITAMIN D [Concomitant]
  5. FEXOFENADINE [Concomitant]
  6. LORAZEPAM [Concomitant]
  7. NITROGLYCERIN [Concomitant]
  8. OLOPATADINE [Concomitant]
  9. PANTOPRAZOLE [Concomitant]

REACTIONS (9)
  - Fall [None]
  - Syncope [None]
  - Haemodynamic instability [None]
  - Supraventricular tachycardia [None]
  - Ventricular fibrillation [None]
  - Subdural haematoma [None]
  - Facial bones fracture [None]
  - Haemorrhage intracranial [None]
  - Myocardial ischaemia [None]
